FAERS Safety Report 9536621 (Version 1)
Quarter: 2013Q3

REPORT INFORMATION
  Report Type: Spontaneous
  Country: SE (occurrence: SE)
  Receive Date: 20130919
  Receipt Date: 20130919
  Transmission Date: 20140515
  Serious: Yes (Life-Threatening, Hospitalization, Other)
  Sender: FDA-Public Use
  Company Number: SE-JNJFOC-20130908821

PATIENT
  Sex: Female

DRUGS (2)
  1. PARACETAMOL [Suspect]
     Route: 048
  2. PARACETAMOL [Suspect]
     Indication: POISONING DELIBERATE
     Route: 048

REACTIONS (9)
  - Poisoning deliberate [Unknown]
  - Paresis [Unknown]
  - Rhabdomyolysis [Unknown]
  - Hyperthermia [Unknown]
  - Coagulopathy [Unknown]
  - Coma [Unknown]
  - Respiratory failure [Unknown]
  - Hepatotoxicity [Unknown]
  - Intentional overdose [Unknown]
